FAERS Safety Report 16770592 (Version 1)
Quarter: 2019Q3

REPORT INFORMATION
  Report Type: Spontaneous
  Country: US (occurrence: US)
  Receive Date: 20190904
  Receipt Date: 20190904
  Transmission Date: 20191005
  Serious: No
  Sender: FDA-Public Use
  Company Number: US-HIKMA PHARMACEUTICALS USA INC.-US-H14001-19-02789

PATIENT
  Age: 76 Year
  Sex: Male

DRUGS (4)
  1. METHADONE HYDROCHLORIDE. [Suspect]
     Active Substance: METHADONE HYDROCHLORIDE
     Indication: PAIN MANAGEMENT
     Route: 048
     Dates: start: 20190412
  2. METHADONE HYDROCHLORIDE. [Suspect]
     Active Substance: METHADONE HYDROCHLORIDE
     Route: 048
  3. AMLODIPINE [Concomitant]
     Active Substance: AMLODIPINE BESYLATE
     Indication: PRODUCT USED FOR UNKNOWN INDICATION
     Route: 065
  4. TOPROL XL [Concomitant]
     Active Substance: METOPROLOL SUCCINATE
     Indication: PRODUCT USED FOR UNKNOWN INDICATION
     Route: 065

REACTIONS (3)
  - Off label use [Unknown]
  - Abdominal pain upper [Recovered/Resolved]
  - Blood pressure increased [Recovered/Resolved]

NARRATIVE: CASE EVENT DATE: 201904
